FAERS Safety Report 6009070-0 (Version None)
Quarter: 2008Q4

REPORT INFORMATION
  Report Type: 
  Country: None (occurrence: None)
  Receive Date: 20081216
  Receipt Date: 20081203
  Transmission Date: 20090506
  Serious: Yes (Other)
  Sender: FDA-Public Use
  Company Number: 037653

PATIENT
  Age: 24 Year
  Sex: Male
  Weight: 97.5 kg

DRUGS (2)
  1. CLARAVIS [Suspect]
     Indication: ACNE
     Dosage: 40 MG, BID, 10 MG, BID, ORAL
     Route: 048
     Dates: start: 20080820
  2. CLARAVIS [Suspect]
     Indication: ACNE
     Dosage: 40 MG, BID, 10 MG, BID, ORAL
     Route: 048
     Dates: start: 20080820

REACTIONS (2)
  - PATERNAL DRUGS AFFECTING FOETUS [None]
  - PREGNANCY OF PARTNER [None]
